FAERS Safety Report 9030522 (Version 1)
Quarter: 2013Q1

REPORT INFORMATION
  Report Type: Spontaneous
  Country: US (occurrence: US)
  Receive Date: 20130122
  Receipt Date: 20130122
  Transmission Date: 20140127
  Serious: Yes (Congenital Anomaly, Other)
  Sender: FDA-Public Use
  Company Number: US-PFIZER INC-2011292376

PATIENT
  Age: 1 Day
  Sex: Male

DRUGS (3)
  1. ZOLOFT [Suspect]
     Dosage: UNK
     Route: 064
     Dates: start: 19990802
  2. TYLENOL [Concomitant]
     Dosage: UNK
     Route: 064
  3. MOTRIN [Concomitant]
     Dosage: UNK
     Route: 064

REACTIONS (2)
  - Maternal exposure timing unspecified [Unknown]
  - Hypoplastic left heart syndrome [Unknown]
